FAERS Safety Report 13264103 (Version 2)
Quarter: 2017Q1

REPORT INFORMATION
  Report Type: Spontaneous
  Country: BE (occurrence: BE)
  Receive Date: 20170223
  Receipt Date: 20170321
  Transmission Date: 20170428
  Serious: Yes (Other)
  Sender: FDA-Public Use
  Company Number: BE-PFIZER INC-2017072619

PATIENT
  Age: 87 Year
  Sex: Male

DRUGS (7)
  1. SPIRONOLACTONE. [Concomitant]
     Active Substance: SPIRONOLACTONE
     Dosage: UNK
  2. BISOPROLOL [Concomitant]
     Active Substance: BISOPROLOL
     Dosage: UNK
  3. ACETYLSALICYLIC ACID [Concomitant]
     Active Substance: ASPIRIN
     Dosage: UNK
  4. PHENPROCOUMON [Concomitant]
     Active Substance: PHENPROCOUMON
     Dosage: UNK
  5. INSULIN [Concomitant]
     Active Substance: INSULIN NOS
     Indication: DIABETES MELLITUS
     Dosage: UNK
  6. ATORVASTATIN CALCIUM. [Suspect]
     Active Substance: ATORVASTATIN CALCIUM
     Indication: ACUTE MYOCARDIAL INFARCTION
     Dosage: 40 MG, DAILY
     Dates: start: 2008
  7. GLIQUIDONE [Concomitant]
     Active Substance: GLIQUIDONE
     Dosage: UNK

REACTIONS (1)
  - Immune-mediated necrotising myopathy [Recovering/Resolving]

NARRATIVE: CASE EVENT DATE: 2013
